FAERS Safety Report 12315547 (Version 1)
Quarter: 2016Q2

REPORT INFORMATION
  Report Type: Spontaneous
  Country: SI (occurrence: SI)
  Receive Date: 20160428
  Receipt Date: 20160428
  Transmission Date: 20160815
  Serious: Yes (Other)
  Sender: FDA-Public Use
  Company Number: SI-NOVAST LABORATORIES, LTD-SI-2016NOV000017

PATIENT
  Age: 63 Year
  Sex: Female

DRUGS (3)
  1. ESTRADIOL. [Suspect]
     Active Substance: ESTRADIOL
     Indication: HORMONE REPLACEMENT THERAPY
     Dosage: PUSH THE PUMP ONCE, QD
     Route: 061
  2. PROGESTERONE. [Suspect]
     Active Substance: PROGESTERONE
     Indication: HORMONE REPLACEMENT THERAPY
     Dosage: PUSH THE PUMP ONCE, QD
     Route: 061
  3. NORETHINDRONE ACETATE\ETHINYL ESTRADIOL [Suspect]
     Active Substance: ETHINYL ESTRADIOL\NORETHINDRONE ACETATE
     Indication: MENOPAUSAL SYMPTOMS
     Dosage: 0.5 MG/1MG, DAILY
     Route: 048
     Dates: end: 201004

REACTIONS (8)
  - Uterine leiomyoma [Unknown]
  - Oestradiol increased [Unknown]
  - Restlessness [Unknown]
  - Endometrial hyperplasia [Unknown]
  - Abdominal pain [Unknown]
  - Energy increased [Unknown]
  - Abnormal behaviour [Unknown]
  - Dermatitis allergic [Unknown]

NARRATIVE: CASE EVENT DATE: 201106
